FAERS Safety Report 16120483 (Version 2)
Quarter: 2019Q2

REPORT INFORMATION
  Report Type: Spontaneous
  Country: US (occurrence: US)
  Receive Date: 20190326
  Receipt Date: 20190415
  Transmission Date: 20190711
  Serious: No
  Sender: FDA-Public Use
  Company Number: US-AMGEN-USASP2019046750

PATIENT
  Age: 58 Year
  Sex: Female
  Weight: 65.3 kg

DRUGS (8)
  1. DOXORUBICIN [Suspect]
     Active Substance: DOXORUBICIN
     Indication: OESTROGEN RECEPTOR ASSAY POSITIVE
  2. CYCLOPHOSPHAMIDE. [Suspect]
     Active Substance: CYCLOPHOSPHAMIDE
     Indication: PROGESTERONE RECEPTOR ASSAY POSITIVE
  3. CYCLOPHOSPHAMIDE. [Suspect]
     Active Substance: CYCLOPHOSPHAMIDE
     Indication: OESTROGEN RECEPTOR ASSAY POSITIVE
  4. DOXORUBICIN [Suspect]
     Active Substance: DOXORUBICIN
     Indication: PROGESTERONE RECEPTOR ASSAY POSITIVE
  5. NEULASTA [Suspect]
     Active Substance: PEGFILGRASTIM
     Indication: PRODUCT USED FOR UNKNOWN INDICATION
     Dosage: 6 MICROGRAM, Q3WK
     Route: 065
     Dates: start: 20190117
  6. NEULASTA [Suspect]
     Active Substance: PEGFILGRASTIM
     Dosage: 6 MICROGRAM, Q3WK
     Route: 065
  7. DOXORUBICIN [Suspect]
     Active Substance: DOXORUBICIN
     Indication: HER-2 POSITIVE BREAST CANCER
     Dosage: 103 MILLIGRAM, Q3WK
     Route: 065
     Dates: start: 20190117, end: 20190321
  8. CYCLOPHOSPHAMIDE. [Suspect]
     Active Substance: CYCLOPHOSPHAMIDE
     Indication: HER-2 POSITIVE BREAST CANCER
     Dosage: 1032 MILLIGRAM, Q3WK
     Route: 065
     Dates: start: 20190117, end: 20190321

REACTIONS (4)
  - Refusal of treatment by patient [Unknown]
  - Wrong technique in product usage process [Unknown]
  - Therapy non-responder [Unknown]
  - White blood cell count decreased [Unknown]

NARRATIVE: CASE EVENT DATE: 2019
